FAERS Safety Report 23930590 (Version 1)
Quarter: 2024Q2

REPORT INFORMATION
  Report Type: Spontaneous
  Country: US (occurrence: None)
  Receive Date: 20240603
  Receipt Date: 20240603
  Transmission Date: 20240717
  Serious: Yes (Other)
  Sender: FDA-Public Use
  Company Number: US-ROCHE-3569207

PATIENT
  Age: 78 Year
  Sex: Female

DRUGS (1)
  1. VABYSMO [Suspect]
     Active Substance: FARICIMAB\FARICIMAB-SVOA
     Indication: Neovascular age-related macular degeneration
     Route: 065

REACTIONS (7)
  - Chorioretinitis [Unknown]
  - Staphylococcal infection [Unknown]
  - Iridocyclitis [Unknown]
  - Subretinal fluid [Unknown]
  - Hypopyon [Unknown]
  - Vitritis [Unknown]
  - Culture positive [Unknown]

NARRATIVE: CASE EVENT DATE: 20230918
